FAERS Safety Report 4557235-7 (Version None)
Quarter: 2005Q1

REPORT INFORMATION
  Report Type: 
  Country: None (occurrence: None)
  Receive Date: 20050119
  Receipt Date: 20050119
  Transmission Date: 20050727
  Serious: Yes (Hospitalization, Other)
  Sender: FDA-Public Use
  Company Number: None

PATIENT
  Sex: Male
  Weight: 83.9154 kg

DRUGS (5)
  1. OXYCODONE HCL [Suspect]
     Indication: PAIN
     Dosage: 80MG   5X/DAY
     Dates: start: 20040720
  2. OXYCODONE HCL [Suspect]
     Indication: SPINAL CORD INJURY
     Dosage: 80MG   5X/DAY
     Dates: start: 20040720
  3. AVINZA [Concomitant]
  4. BACLOFEN [Concomitant]
  5. NEURONTIN [Concomitant]

REACTIONS (8)
  - ANXIETY [None]
  - DYSPNOEA [None]
  - DYSURIA [None]
  - FLUSHING [None]
  - GASTROOESOPHAGEAL REFLUX DISEASE [None]
  - HYPOAESTHESIA [None]
  - NASAL CONGESTION [None]
  - TACHYCARDIA [None]
